FAERS Safety Report 5988331-5 (Version None)
Quarter: 2008Q4

REPORT INFORMATION
  Report Type: 
  Country: None (occurrence: None)
  Receive Date: 20081210
  Receipt Date: 20081201
  Transmission Date: 20090506
  Serious: Yes (Hospitalization)
  Sender: FDA-Public Use
  Company Number: US-BIOGENIDEC-207153

PATIENT
  Age: 41 Year
  Sex: Female
  Weight: 90 kg

DRUGS (4)
  1. AVONEX [Suspect]
     Indication: MULTIPLE SCLEROSIS
     Route: 030
     Dates: start: 20030101, end: 20040901
  2. LEXAPRO [Concomitant]
     Indication: DEPRESSION
  3. KLONOPIN [Concomitant]
     Indication: PANIC DISORDER
  4. ZONEGRAN [Concomitant]
     Indication: DEPRESSION

REACTIONS (8)
  - BLINDNESS TRANSIENT [None]
  - CONTUSION [None]
  - DEAFNESS [None]
  - FALL [None]
  - MULTIPLE SCLEROSIS RELAPSE [None]
  - MUSCULAR WEAKNESS [None]
  - POLLAKIURIA [None]
  - WEIGHT INCREASED [None]
